FAERS Safety Report 8376953-6 (Version None)
Quarter: 2012Q2

REPORT INFORMATION
  Report Type: 
  Country: None (occurrence: None)
  Receive Date: 20120522
  Receipt Date: 20120510
  Transmission Date: 20120825
  Serious: Yes (Hospitalization)
  Sender: FDA-Public Use
  Company Number: NL-JNJFOC-20120510109

PATIENT
  Sex: Female
  Weight: 74 kg

DRUGS (1)
  1. MODICON [Suspect]
     Indication: MENSTRUAL DISORDER
     Route: 065
     Dates: start: 20111101, end: 20120428

REACTIONS (2)
  - OFF LABEL USE [None]
  - DEEP VEIN THROMBOSIS [None]
